FAERS Safety Report 20085344 (Version 2)
Quarter: 2021Q4

REPORT INFORMATION
  Report Type: Spontaneous
  Country: DE (occurrence: DE)
  Receive Date: 20211118
  Receipt Date: 20211122
  Transmission Date: 20220303
  Serious: Yes (Life-Threatening, Hospitalization, Other)
  Sender: FDA-Public Use
  Company Number: DE-ADRED-07108-01

PATIENT
  Age: 82 Year
  Sex: Female
  Weight: 75 kg

DRUGS (8)
  1. APIXABAN [Suspect]
     Active Substance: APIXABAN
     Indication: Product used for unknown indication
     Dosage: 5 MILLIGRAM, 5 MG, 1-0-1-0, TABLETTEN
     Route: 048
  2. METAMIZOL                          /06276701/ [Concomitant]
     Dosage: 500 MILLIGRAM, 500 MG, 1-0-0-0, TABLETTEN
     Route: 048
  3. CARBIDOPA\LEVODOPA [Concomitant]
     Active Substance: CARBIDOPA\LEVODOPA
     Dosage: UNK, 25|100 MG, 0-0-0-1, RETARD-TABLETTEN
     Route: 048
  4. PREGABALIN [Concomitant]
     Active Substance: PREGABALIN
     Dosage: 25 MILLIGRAM, 25 MG, 0-0-1-0, KAPSELN
     Route: 048
  5. MIRTAZAPINE [Concomitant]
     Active Substance: MIRTAZAPINE
     Dosage: 15 MILLIGRAM, 15 MG, 0-0-0-1, SCHMELZTABLETTEN
     Route: 048
  6. TORSEMIDE [Concomitant]
     Active Substance: TORSEMIDE
     Dosage: 10 MILLIGRAM, 10 MG, 1-0-0-0, TABLETTEN
     Route: 048
  7. CHOLECALCIFEROL [Concomitant]
     Active Substance: CHOLECALCIFEROL
     Dosage: 20000 INTERNATIONAL UNIT, 20000 IE, NACH SCHEMA, KAPSELN
     Route: 048
  8. BENSERAZIDE\LEVODOPA [Concomitant]
     Active Substance: BENSERAZIDE\LEVODOPA
     Dosage: UNK, 25|100 MG, 2-2-1.5-0, TABLETTEN
     Route: 048

REACTIONS (2)
  - Pain [Unknown]
  - Fall [Unknown]
